FAERS Safety Report 18543354 (Version 10)
Quarter: 2021Q2

REPORT INFORMATION
  Report Type: Spontaneous
  Country: PH (occurrence: PH)
  Receive Date: 20201125
  Receipt Date: 20210527
  Transmission Date: 20210717
  Serious: Yes (Hospitalization, Disabling, Other)
  Sender: FDA-Public Use
  Company Number: PH-PFIZER INC-2020452865

PATIENT
  Age: 71 Year
  Sex: Male

DRUGS (4)
  1. ARCOXIA [Concomitant]
     Active Substance: ETORICOXIB
     Dosage: UNK
  2. LYRICA [Suspect]
     Active Substance: PREGABALIN
     Indication: GINGIVAL PAIN
  3. LYRICA [Suspect]
     Active Substance: PREGABALIN
     Indication: ORAL PAIN
     Dosage: 150 MG SINGLE (AT 14:00, TAKEN ONLY 1 TIME)
     Dates: start: 20200730, end: 20200730
  4. LYRICA [Suspect]
     Active Substance: PREGABALIN
     Indication: PAIN IN JAW

REACTIONS (9)
  - Off label use [Unknown]
  - Somnolence [Recovered/Resolved with Sequelae]
  - Pruritus [Unknown]
  - Vision blurred [Recovered/Resolved with Sequelae]
  - Drug ineffective for unapproved indication [Recovered/Resolved with Sequelae]
  - Paraesthesia [Recovered/Resolved with Sequelae]
  - Brain neoplasm benign [Unknown]
  - Diplopia [Recovered/Resolved with Sequelae]
  - Papilloedema [Recovered/Resolved with Sequelae]

NARRATIVE: CASE EVENT DATE: 20200730
